FAERS Safety Report 8063698-5 (Version None)
Quarter: 2011Q4

REPORT INFORMATION
  Report Type: 
  Country: None (occurrence: None)
  Receive Date: 20111220
  Receipt Date: 20111019
  Transmission Date: 20120403
  Serious: Yes (Other)
  Sender: FDA-Public Use
  Company Number: 2010005805

PATIENT
  Age: 55 Year
  Sex: Male
  Weight: 66.3 kg

DRUGS (3)
  1. OXYCONTIN (10 MILLIGRAM) [Concomitant]
  2. FENTANYL CITRATE [Suspect]
     Indication: CANCER PAIN
     Dosage: 3200 MCG (800 MCG, 4 IN 1 D), BU
     Route: 002
     Dates: start: 20091001
  3. FENTANYL CITRATE [Suspect]
     Indication: BREAKTHROUGH PAIN
     Dosage: 3200 MCG (800 MCG, 4 IN 1 D), BU
     Route: 002
     Dates: start: 20091001

REACTIONS (2)
  - DRUG PRESCRIBING ERROR [None]
  - DRUG INEFFECTIVE [None]
